FAERS Safety Report 25106336 (Version 3)
Quarter: 2025Q2

REPORT INFORMATION
  Report Type: Spontaneous
  Country: AU (occurrence: AU)
  Receive Date: 20250321
  Receipt Date: 20250418
  Transmission Date: 20250717
  Serious: Yes (Other)
  Sender: PFIZER
  Company Number: AU-PFIZER INC-202500061162

PATIENT
  Sex: Female

DRUGS (3)
  1. DIETARY SUPPLEMENT [Suspect]
     Active Substance: DIETARY SUPPLEMENT
  2. LEUCOVORIN CALCIUM [Concomitant]
     Active Substance: LEUCOVORIN CALCIUM
     Dosage: 7.5 MG, WEEKLY
  3. METHOBLASTIN [METHOTREXATE SODIUM] [Concomitant]
     Dosage: 25 MG, WEEKLY

REACTIONS (3)
  - Neuropathy peripheral [Unknown]
  - Vitamin B6 increased [Unknown]
  - Blood copper increased [Unknown]

NARRATIVE: CASE EVENT DATE: 20250101
